FAERS Safety Report 8773362 (Version 4)
Quarter: 2012Q4

REPORT INFORMATION
  Report Type: Report from Study
  Country: NL (occurrence: NL)
  Receive Date: 20120907
  Receipt Date: 20121031
  Transmission Date: 20130627
  Serious: Yes (Other)
  Sender: FDA-Public Use
  Company Number: NL-BAXTER-2012BAX010466

PATIENT
  Age: 61 Year
  Sex: Female

DRUGS (3)
  1. KIOVIG 100 MG/ML SOLUTION POUR PERFUSION (10 G/100 ML) [Suspect]
     Indication: IMMUNODEFICIENCY
     Route: 042
     Dates: start: 20100413
  2. KIOVIG 100 MG/ML SOLUTION POUR PERFUSION (10 G/100 ML) [Suspect]
     Dosage: ONE VIAL KIOVIG 100ML/10G AND ONE VIAL 50ML/5G
     Route: 042
     Dates: start: 20120621
  3. KIOVIG 100 MG/ML SOLUTION POUR PERFUSION (10 G/100 ML) [Suspect]
     Dosage: ONE VIAL KIOVIG 100ML/10G AND ONE VIAL 50ML/5G
     Route: 042
     Dates: start: 20120705

REACTIONS (3)
  - Pain in jaw [Recovering/Resolving]
  - Respiratory tract infection [Recovering/Resolving]
  - Tooth infection [Unknown]
